FAERS Safety Report 10661647 (Version 1)
Quarter: 2014Q4

REPORT INFORMATION
  Report Type: Spontaneous
  Country: DE (occurrence: DE)
  Receive Date: 20141218
  Receipt Date: 20141218
  Transmission Date: 20150529
  Serious: Yes (Other)
  Sender: FDA-Public Use
  Company Number: DE-PFIZER INC-2014344805

PATIENT
  Sex: Male
  Weight: 1.95 kg

DRUGS (7)
  1. GABAPENTIN. [Suspect]
     Active Substance: GABAPENTIN
     Indication: RESTLESS LEGS SYNDROME
     Dosage: 300 MG, DAILY, IN THE BEGINNING
     Route: 064
  2. DIPHENHYDRAMINE [Suspect]
     Active Substance: DIPHENHYDRAMINE
     Indication: ANXIETY DISORDER
     Dosage: 50 MG, 1X/DAY
     Route: 064
     Dates: start: 20131006, end: 20140629
  3. GABAPENTIN. [Suspect]
     Active Substance: GABAPENTIN
     Dosage: 350 MG, DAILY UNTIL WEEK 35+3
     Route: 064
  4. CEFUROXIM [Concomitant]
     Active Substance: CEFUROXIME
     Indication: INFECTION PROPHYLAXIS
     Dosage: UNK
     Route: 064
  5. FOLIC ACID. [Concomitant]
     Active Substance: FOLIC ACID
     Indication: PROPHYLAXIS OF NEURAL TUBE DEFECT
     Dosage: UNK
     Route: 064
  6. SERTRALINE HCL [Suspect]
     Active Substance: SERTRALINE HYDROCHLORIDE
     Indication: DEPRESSION
     Dosage: 200 MG, 1X/DAY
     Route: 064
     Dates: start: 20131006, end: 20140629
  7. GABAPENTIN. [Suspect]
     Active Substance: GABAPENTIN
     Dosage: 400 MG, DAILY
     Route: 064

REACTIONS (10)
  - Microcephaly [Unknown]
  - Temperature regulation disorder [Recovered/Resolved]
  - Placental insufficiency [Unknown]
  - Small for dates baby [Unknown]
  - Placental disorder [Unknown]
  - Feeding disorder neonatal [Recovered/Resolved]
  - Muscle disorder [Unknown]
  - Maternal exposure during pregnancy [Unknown]
  - Respiratory disorder neonatal [Recovered/Resolved]
  - Foetal growth restriction [Unknown]

NARRATIVE: CASE EVENT DATE: 2014
